FAERS Safety Report 16698667 (Version 3)
Quarter: 2022Q3

REPORT INFORMATION
  Report Type: Spontaneous
  Country: RO (occurrence: RO)
  Receive Date: 20190813
  Receipt Date: 20220725
  Transmission Date: 20221027
  Serious: Yes (Hospitalization, Other)
  Sender: FDA-Public Use
  Company Number: RO-GLAXOSMITHKLINE-RO2019EME143468

PATIENT

DRUGS (1)
  1. SERETIDE [Suspect]
     Active Substance: FLUTICASONE PROPIONATE\SALMETEROL XINAFOATE
     Indication: Product used for unknown indication
     Dosage: UNK 50/500

REACTIONS (6)
  - Respiratory failure [Unknown]
  - Cardiovascular disorder [Unknown]
  - Mental disorder [Unknown]
  - Chronic obstructive pulmonary disease [Unknown]
  - Peripheral vascular disorder [Unknown]
  - Dysphonia [Unknown]
